FAERS Safety Report 7522046-7 (Version None)
Quarter: 2011Q2

REPORT INFORMATION
  Report Type: 
  Country: None (occurrence: None)
  Receive Date: 20110603
  Receipt Date: 20110521
  Transmission Date: 20111010
  Serious: Yes (Other)
  Sender: FDA-Public Use
  Company Number: DE-JNJFOC-20110412245

PATIENT
  Sex: Male
  Weight: 68 kg

DRUGS (7)
  1. TAPENTADOL [Suspect]
     Indication: BACK PAIN
     Route: 048
     Dates: start: 20101214, end: 20110415
  2. OXYCODON [Concomitant]
     Dosage: 40 MG/D
     Route: 065
     Dates: start: 20101101, end: 20101209
  3. OXYCODON [Concomitant]
     Dosage: 40 MG/D
     Route: 065
     Dates: start: 20101218
  4. OXYCODON [Concomitant]
     Indication: PAIN
     Dosage: 20 MG/D
     Route: 065
     Dates: start: 20101210, end: 20101217
  5. NSAIDS [Concomitant]
     Indication: PAIN
     Route: 065
  6. TAPENTADOL [Suspect]
     Route: 048
     Dates: start: 20101208, end: 20101214
  7. ZOPICLONE [Concomitant]
     Indication: SLEEP DISORDER
     Route: 065

REACTIONS (3)
  - PERSONALITY CHANGE [None]
  - ABNORMAL BEHAVIOUR [None]
  - MENTAL IMPAIRMENT [None]
